FAERS Safety Report 16767093 (Version 2)
Quarter: 2019Q4

REPORT INFORMATION
  Report Type: Spontaneous
  Country: IT (occurrence: IT)
  Receive Date: 20190903
  Receipt Date: 20191105
  Transmission Date: 20200122
  Serious: Yes (Other)
  Sender: FDA-Public Use
  Company Number: IT-PFIZER INC-2019367146

PATIENT
  Age: 46 Year
  Sex: Female

DRUGS (4)
  1. PONATINIB [Interacting]
     Active Substance: PONATINIB
     Dosage: 30 MG, 1X/DAY
     Dates: start: 2017
  2. PONATINIB [Interacting]
     Active Substance: PONATINIB
     Dosage: 15 MG, 1X/DAY
     Dates: start: 2017
  3. VORICONAZOLE. [Suspect]
     Active Substance: VORICONAZOLE
     Indication: BRONCHOPULMONARY ASPERGILLOSIS
     Dosage: 100 MG, 2X/DAY (BID)
  4. PONATINIB [Interacting]
     Active Substance: PONATINIB
     Indication: ACUTE LYMPHOCYTIC LEUKAEMIA
     Dosage: 45 MG, 1X/DAY
     Dates: start: 201612

REACTIONS (2)
  - Drug level increased [Unknown]
  - Drug interaction [Unknown]

NARRATIVE: CASE EVENT DATE: 2017
